FAERS Safety Report 12749948 (Version 1)
Quarter: 2016Q3

REPORT INFORMATION
  Report Type: Spontaneous
  Country: US (occurrence: US)
  Receive Date: 20160915
  Receipt Date: 20160915
  Transmission Date: 20161109
  Serious: Yes (Hospitalization)
  Sender: FDA-Public Use
  Company Number: None

PATIENT
  Age: 80 Year
  Sex: Female
  Weight: 83.6 kg

DRUGS (5)
  1. FOSINOPRIL [Concomitant]
     Active Substance: FOSINOPRIL
  2. HYDROCHLOROTHIAZIDE. [Concomitant]
     Active Substance: HYDROCHLOROTHIAZIDE
  3. DASATINIB [Suspect]
     Active Substance: DASATINIB
     Indication: CHRONIC MYELOID LEUKAEMIA
     Route: 048
     Dates: start: 20160817, end: 20160915
  4. ALLOPURINOL. [Concomitant]
     Active Substance: ALLOPURINOL
  5. ATORVASTATIN [Concomitant]
     Active Substance: ATORVASTATIN

REACTIONS (3)
  - Pneumonia [None]
  - Malaise [None]
  - Fatigue [None]

NARRATIVE: CASE EVENT DATE: 20160822
